FAERS Safety Report 6156235-3 (Version None)
Quarter: 2009Q2

REPORT INFORMATION
  Report Type: 
  Country: None (occurrence: None)
  Receive Date: 20090415
  Receipt Date: 20090414
  Transmission Date: 20091009
  Serious: Yes (Hospitalization)
  Sender: FDA-Public Use
  Company Number: FR-WYE-G03499009

PATIENT
  Sex: Female

DRUGS (3)
  1. ADVIL [Suspect]
     Dosage: ONE SINGLE DOSE
     Route: 048
     Dates: start: 20090318, end: 20090318
  2. BIRODOGYL [Concomitant]
     Indication: DENTAL CARE
     Dosage: UNKNOWN
     Dates: start: 20090224, end: 20090305
  3. SURGAM [Suspect]
     Indication: DENTAL CARE
     Dosage: UNKNOWN
     Route: 048
     Dates: start: 20090224, end: 20090305

REACTIONS (1)
  - COLITIS ISCHAEMIC [None]
